FAERS Safety Report 18996510 (Version 1)
Quarter: 2021Q1

REPORT INFORMATION
  Report Type: Spontaneous
  Country: CN (occurrence: CN)
  Receive Date: 20210311
  Receipt Date: 20210311
  Transmission Date: 20210420
  Serious: Yes (Other)
  Sender: FDA-Public Use
  Company Number: CN-ABBVIE-21K-035-3809802-00

PATIENT

DRUGS (1)
  1. RITONAVIR. [Suspect]
     Active Substance: RITONAVIR
     Indication: COVID-19
     Route: 048
     Dates: start: 2020

REACTIONS (2)
  - Liver injury [Unknown]
  - Off label use [Unknown]

NARRATIVE: CASE EVENT DATE: 2020
